FAERS Safety Report 19329322 (Version 1)
Quarter: 2021Q2

REPORT INFORMATION
  Report Type: Spontaneous
  Country: IT (occurrence: IT)
  Receive Date: 20210529
  Receipt Date: 20210529
  Transmission Date: 20210717
  Serious: Yes (Death, Hospitalization, Other)
  Sender: FDA-Public Use
  Company Number: IT-AUROBINDO-AUR-APL-2021-021515

PATIENT
  Age: 85 Year
  Sex: Male

DRUGS (9)
  1. CANAKINUMAB. [Suspect]
     Active Substance: CANAKINUMAB
     Indication: PRODUCT USED FOR UNKNOWN INDICATION
     Dosage: 300 MILLIGRAM, 1 TOTAL (SINGLE)
     Route: 058
     Dates: start: 20200423, end: 20200423
  2. AZITHROMYCIN ANHYDROUS. [Suspect]
     Active Substance: AZITHROMYCIN ANHYDROUS
     Indication: COVID-19
     Dosage: UNK
     Route: 065
     Dates: start: 20200327
  3. ENOXAPARIN SODIUM. [Suspect]
     Active Substance: ENOXAPARIN SODIUM
     Indication: COVID-19
     Dosage: UNK
     Route: 065
     Dates: start: 20200327
  4. HYDROXYCHLOROQUINE [Interacting]
     Active Substance: HYDROXYCHLOROQUINE
     Indication: COVID-19
     Dosage: UNK
     Route: 065
     Dates: start: 20200323
  5. TOCILIZUMAB. [Suspect]
     Active Substance: TOCILIZUMAB
     Indication: COVID-19
     Dosage: 8 MILLIGRAM/KILOGRAM, 1 TOTAL (SINGLE)
     Route: 042
     Dates: start: 20200328
  6. FUROSEMIDE. [Suspect]
     Active Substance: FUROSEMIDE
     Indication: PRODUCT USED FOR UNKNOWN INDICATION
     Dosage: UNK
     Route: 042
     Dates: start: 20200416
  7. CANAKINUMAB. [Suspect]
     Active Substance: CANAKINUMAB
     Indication: COVID-19
     Dosage: 300 MILLIGRAM 1 TOTAL (SINGLE)
     Route: 058
     Dates: start: 20200417, end: 20200417
  8. DEXMEDETOMIDINE. [Suspect]
     Active Substance: DEXMEDETOMIDINE
     Indication: SEDATION
     Dosage: UNK
     Route: 065
     Dates: start: 20200415
  9. LOPINAVIR;RITONAVIR [Suspect]
     Active Substance: LOPINAVIR\RITONAVIR
     Indication: COVID-19
     Dosage: UNK
     Route: 065
     Dates: start: 20200327

REACTIONS (10)
  - Respiratory failure [Unknown]
  - Off label use [Unknown]
  - Acute kidney injury [Unknown]
  - Oliguria [Recovered/Resolved]
  - Cardiac failure acute [Unknown]
  - Drug interaction [Unknown]
  - Product use in unapproved indication [Unknown]
  - Superinfection bacterial [Fatal]
  - Hypertension [Unknown]
  - COVID-19 [Unknown]

NARRATIVE: CASE EVENT DATE: 20200323
